FAERS Safety Report 5291204-7 (Version None)
Quarter: 2007Q2

REPORT INFORMATION
  Report Type: 
  Country: None (occurrence: None)
  Receive Date: 20070409
  Receipt Date: 20070329
  Transmission Date: 20071010
  Serious: Yes (Other)
  Sender: FDA-Public Use
  Company Number: DE-SHR-DE-2007-006428

PATIENT
  Sex: Female
  Weight: 71 kg

DRUGS (2)
  1. SOTALOL HYDROCHLORIDE [Suspect]
     Indication: ARRHYTHMIA
     Dosage: UNK, UNK
     Dates: end: 20070201
  2. TAMIFLU [Suspect]
     Indication: INFLUENZA
     Dosage: 1 TAB(S), 1 DOSE
     Route: 048
     Dates: start: 20070214, end: 20070214

REACTIONS (4)
  - CARDIAC DISCOMFORT [None]
  - DYSPNOEA [None]
  - INFLUENZA [None]
  - PYREXIA [None]
